FAERS Safety Report 10194753 (Version 1)
Quarter: 2014Q2

REPORT INFORMATION
  Report Type: Spontaneous
  Country: IN (occurrence: IN)
  Receive Date: 20140526
  Receipt Date: 20140526
  Transmission Date: 20141212
  Serious: Yes (Hospitalization, Other)
  Sender: FDA-Public Use
  Company Number: IN-009507513-1405IND011868

PATIENT
  Age: 52 Year
  Sex: Female
  Weight: 75 kg

DRUGS (2)
  1. JANUMET [Suspect]
     Indication: DIABETES MELLITUS
     Dosage: DOSE: 1, FREQUENCY: 1/DAY
     Route: 048
  2. NOVOLOG MIX 70/30 [Suspect]
     Indication: DIABETES MELLITUS
     Dosage: 34U MORNING, 22U EVENING

REACTIONS (3)
  - Cerebrovascular accident [Recovering/Resolving]
  - Stent placement [Unknown]
  - Inappropriate schedule of drug administration [Unknown]
